FAERS Safety Report 8716382 (Version 2)
Quarter: 2013Q4

REPORT INFORMATION
  Report Type: Spontaneous
  Country: US (occurrence: US)
  Receive Date: 20120810
  Receipt Date: 20131101
  Transmission Date: 20140711
  Serious: No
  Sender: FDA-Public Use
  Company Number: US-009507513-1207USA009580

PATIENT
  Sex: 0

DRUGS (2)
  1. AZASITE [Suspect]
     Dosage: 1 DROP IN EACH EYE, BID
     Route: 047
  2. AZASITE [Suspect]
     Dosage: 1 DROP IN EACH EYE, QD
     Route: 047

REACTIONS (3)
  - Product packaging quantity issue [Unknown]
  - Drug prescribing error [Unknown]
  - No adverse event [Unknown]
